FAERS Safety Report 4397600-4 (Version None)
Quarter: 2004Q3

REPORT INFORMATION
  Report Type: 
  Country: None (occurrence: None)
  Receive Date: 20040712
  Receipt Date: 20040621
  Transmission Date: 20050211
  Serious: Yes (Other)
  Sender: FDA-Public Use
  Company Number: GBS040615126

PATIENT
  Age: 67 Year
  Sex: Female

DRUGS (2)
  1. FORTEO [Suspect]
     Indication: OSTEOPOROSIS
     Dosage: 20 UG DAY
     Dates: start: 20040115, end: 20040621
  2. CALCICHEW (CALCIUM CARBONATE) [Concomitant]

REACTIONS (12)
  - ARTHRALGIA [None]
  - ASTHENIA [None]
  - BONE FORMATION INCREASED [None]
  - CHEST WALL PAIN [None]
  - FEELING ABNORMAL [None]
  - IMMUNOGLOBULINS DECREASED [None]
  - INCREASED APPETITE [None]
  - LUNG INFECTION [None]
  - METASTASES TO BONE [None]
  - MULTIPLE FRACTURES [None]
  - NECK PAIN [None]
  - PALLOR [None]
